FAERS Safety Report 6072964-4 (Version None)
Quarter: 2009Q1

REPORT INFORMATION
  Report Type: 
  Country: None (occurrence: None)
  Receive Date: 20090206
  Receipt Date: 20090123
  Transmission Date: 20090719
  Serious: Yes (Congenital Anomaly)
  Sender: FDA-Public Use
  Company Number: 8028811

PATIENT
  Sex: Female
  Weight: 8.35 kg

DRUGS (9)
  1. KEPPRA [Suspect]
     Indication: EPILEPSY
     Dosage: 3000 MG /D TRP
     Route: 064
     Dates: end: 20071215
  2. TEGRETOL [Suspect]
     Indication: CONVULSION
     Dosage: 1600 MG /D TRP
     Route: 064
     Dates: end: 20071215
  3. TEGRETOL [Suspect]
     Indication: CONVULSION
     Dosage: 1800 MG /D TRP
     Route: 064
  4. OMEGA FATTY ACID [Concomitant]
  5. ZOLOFT [Concomitant]
  6. ZOLOFT [Concomitant]
  7. VITAMIN TAB [Concomitant]
  8. FOLIC ACID [Concomitant]
  9. VITAMIN K [Concomitant]

REACTIONS (3)
  - CLEFT PALATE [None]
  - EYELID PTOSIS CONGENITAL [None]
  - MATERNAL DRUGS AFFECTING FOETUS [None]
